FAERS Safety Report 8966924 (Version 1)
Quarter: 2012Q4

REPORT INFORMATION
  Report Type: 
  Country: US (occurrence: US)
  Receive Date: 20121214
  Receipt Date: 20121214
  Transmission Date: 20130627
  Serious: Yes (Other)
  Sender: FDA-Public Use
  Company Number: US-PFIZER INC-2012314993

PATIENT

DRUGS (4)
  1. ADVIL [Suspect]
     Indication: PAIN
     Dosage: UNK
  2. ADVIL [Suspect]
     Indication: BACK PAIN
  3. ADVIL [Suspect]
     Indication: KNEE PAIN
  4. ADVIL [Suspect]
     Indication: ARTHRITIC PAINS

REACTIONS (1)
  - Renal failure chronic [Unknown]
